FAERS Safety Report 6494875-2 (Version None)
Quarter: 2009Q4

REPORT INFORMATION
  Report Type: 
  Country: None (occurrence: None)
  Receive Date: 20091214
  Receipt Date: 20090402
  Transmission Date: 20100525
  Serious: No
  Sender: FDA-Public Use
  Company Number: US-BRISTOL-MYERS SQUIBB COMPANY-14571988

PATIENT
  Age: 16 Year
  Sex: Male

DRUGS (2)
  1. ABILIFY [Suspect]
     Indication: AFFECTIVE DISORDER
     Dosage: STARTING WITH 5MG,TITRATED TO 15MG
  2. RISPERDAL [Concomitant]
     Indication: AFFECTIVE DISORDER

REACTIONS (1)
  - WEIGHT INCREASED [None]
